FAERS Safety Report 5656302-4 (Version None)
Quarter: 2008Q1

REPORT INFORMATION
  Report Type: 
  Country: None (occurrence: None)
  Receive Date: 20080309
  Receipt Date: 20070921
  Transmission Date: 20080703
  Serious: No
  Sender: FDA-Public Use
  Company Number: US-BAYER-200713043BCC

PATIENT
  Age: 32 Year
  Sex: Female
  Weight: 46 kg

DRUGS (1)
  1. MIDOL EXTENDED RELIEF CAPLETS [Suspect]
     Indication: DYSMENORRHOEA
     Dosage: AS USED: 440/220/220/220 MG  UNIT DOSE: 220 MG
     Route: 048
     Dates: start: 20070919

REACTIONS (2)
  - DYSMENORRHOEA [None]
  - DYSPEPSIA [None]
